FAERS Safety Report 9485907 (Version 3)
Quarter: 2013Q4

REPORT INFORMATION
  Report Type: Spontaneous
  Country: DK (occurrence: DK)
  Receive Date: 20130829
  Receipt Date: 20131011
  Transmission Date: 20140711
  Serious: Yes (Death, Hospitalization)
  Sender: FDA-Public Use
  Company Number: DK-ASTRAZENECA-2013SE65498

PATIENT
  Age: 52 Year
  Sex: Male
  Weight: 78 kg

DRUGS (5)
  1. BRILIQUE [Suspect]
     Indication: ACUTE MYOCARDIAL INFARCTION
     Route: 048
     Dates: start: 20130421
  2. BRILIQUE [Suspect]
     Indication: ACUTE MYOCARDIAL INFARCTION
     Route: 048
     Dates: start: 20130421
  3. HEPARIN [Suspect]
     Indication: ACUTE MYOCARDIAL INFARCTION
     Route: 065
  4. MAGNYL [Suspect]
     Indication: ACUTE MYOCARDIAL INFARCTION
     Route: 065
  5. ACETYLSALICYLSYRE [Concomitant]
     Indication: ACUTE MYOCARDIAL INFARCTION
     Dates: start: 20120421

REACTIONS (6)
  - Cerebral haemorrhage [Fatal]
  - Malaise [Fatal]
  - Mydriasis [Fatal]
  - Aphasia [Fatal]
  - Hemiplegia [Not Recovered/Not Resolved]
  - Loss of consciousness [Not Recovered/Not Resolved]
